FAERS Safety Report 24693822 (Version 1)
Quarter: 2024Q4

REPORT INFORMATION
  Report Type: Spontaneous
  Country: US (occurrence: US)
  Receive Date: 20241204
  Receipt Date: 20241204
  Transmission Date: 20250114
  Serious: No
  Sender: Steriscience PTE
  Company Number: US-STERISCIENCE B.V.-2024-ST-001655

PATIENT

DRUGS (2)
  1. BUPIVACAINE [Suspect]
     Active Substance: BUPIVACAINE
     Indication: Postoperative analgesia
     Dosage: UNK, ADMINISTERED ON EACH SIDE AT L1-L2 INTERVERTEBRAL LEVEL
  2. BUPIVACAINE [Concomitant]
     Active Substance: BUPIVACAINE
     Indication: Postoperative analgesia
     Dosage: ADMINISTERED ON EACH SIDE AT L1-L2 INTERVERTEBRAL LEVEL

REACTIONS (1)
  - Off label use [Unknown]
